FAERS Safety Report 17534837 (Version 3)
Quarter: 2020Q2

REPORT INFORMATION
  Report Type: Spontaneous
  Country: US (occurrence: US)
  Receive Date: 20200312
  Receipt Date: 20200618
  Transmission Date: 20200713
  Serious: No
  Sender: FDA-Public Use
  Company Number: US-SA-2020SA062166

PATIENT

DRUGS (2)
  1. AUBAGIO [Suspect]
     Active Substance: TERIFLUNOMIDE
     Dosage: 14 MG, QD
     Route: 048
     Dates: start: 2020
  2. AUBAGIO [Suspect]
     Active Substance: TERIFLUNOMIDE
     Indication: MULTIPLE SCLEROSIS
     Dosage: 14 MG, QD
     Route: 048
     Dates: start: 20200115

REACTIONS (16)
  - Hyperhidrosis [Unknown]
  - Alopecia [Unknown]
  - Muscle spasticity [Unknown]
  - Diarrhoea [Unknown]
  - Fall [Unknown]
  - Mobility decreased [Unknown]
  - Sensory disturbance [Unknown]
  - Pain [Unknown]
  - Balance disorder [Unknown]
  - Bladder disorder [Unknown]
  - Visual impairment [Unknown]
  - Musculoskeletal stiffness [Unknown]
  - Back pain [Unknown]
  - Product dose omission [Unknown]
  - Dizziness [Unknown]
  - Sleep disorder [Unknown]

NARRATIVE: CASE EVENT DATE: 2020
